FAERS Safety Report 6580728-8 (Version None)
Quarter: 2010Q1

REPORT INFORMATION
  Report Type: 
  Country: None (occurrence: None)
  Receive Date: 20100212
  Receipt Date: 20100201
  Transmission Date: 20100710
  Serious: Yes (Hospitalization, Other)
  Sender: FDA-Public Use
  Company Number: US-ROCHE-649888

PATIENT
  Sex: Male
  Weight: 77.1 kg

DRUGS (4)
  1. ACCUTANE [Suspect]
     Indication: ACNE
     Route: 048
     Dates: start: 19950609
  2. ACCUTANE [Suspect]
     Dosage: 40 MG ONCE DAILY ALTERNATING WITH 80 MG ONCE DAILY EVERY OTHER DAY
     Route: 048
     Dates: start: 19950707, end: 19950906
  3. ACCUTANE [Suspect]
     Route: 048
     Dates: start: 19950907, end: 19951105
  4. ACCUTANE [Suspect]
     Route: 048
     Dates: end: 19950101

REACTIONS (8)
  - ANAL ABSCESS [None]
  - ANAL FISTULA [None]
  - BLOOD TRIGLYCERIDES INCREASED [None]
  - COLITIS ULCERATIVE [None]
  - CROHN'S DISEASE [None]
  - DEPRESSION [None]
  - INFLAMMATORY BOWEL DISEASE [None]
  - SMALL INTESTINAL PERFORATION [None]
